FAERS Safety Report 6184688-3 (Version None)
Quarter: 2009Q2

REPORT INFORMATION
  Report Type: 
  Country: None (occurrence: None)
  Receive Date: 20090508
  Receipt Date: 20090224
  Transmission Date: 20091009
  Serious: Yes (Other)
  Sender: FDA-Public Use
  Company Number: GB-PFIZER INC-2009210079

PATIENT

DRUGS (2)
  1. NICOTINE [Suspect]
     Route: 045
  2. NICORETTE [Suspect]
     Route: 048

REACTIONS (3)
  - DEPENDENCE [None]
  - OVERDOSE [None]
  - POLYDIPSIA [None]
